FAERS Safety Report 7704925-0 (Version None)
Quarter: 2011Q3

REPORT INFORMATION
  Report Type: 
  Country: None (occurrence: None)
  Receive Date: 20110823
  Receipt Date: 20110819
  Transmission Date: 20111222
  Serious: Yes (Hospitalization)
  Sender: FDA-Public Use
  Company Number: US-ABBOTT-11P-163-0734180-00

PATIENT
  Sex: Female
  Weight: 90.8 kg

DRUGS (14)
  1. TRIAMTERENE [Concomitant]
     Indication: HYPERTENSION
  2. VITAMIN B-12 [Concomitant]
     Indication: VITAMIN SUPPLEMENTATION
     Route: 045
  3. WELCHOL [Concomitant]
     Indication: BLOOD CHOLESTEROL INCREASED
  4. VOLTAREN [Concomitant]
     Indication: ILIOTIBIAL BAND SYNDROME
     Dosage: GEL
  5. FISH OIL [Concomitant]
     Indication: SUPPLEMENTATION THERAPY
  6. HUMIRA [Suspect]
  7. APRISO [Concomitant]
     Indication: CROHN'S DISEASE
  8. FLUOXETINE [Concomitant]
     Indication: DEPRESSION
  9. ASACOL [Concomitant]
     Indication: CROHN'S DISEASE
  10. VOLTAREN [Concomitant]
     Indication: PAIN
  11. MIRAPEX [Concomitant]
     Indication: RESTLESS LEGS SYNDROME
  12. VITAMIN D [Concomitant]
     Indication: VITAMIN SUPPLEMENTATION
  13. HUMIRA [Suspect]
     Indication: CROHN'S DISEASE
     Dates: start: 20100101
  14. LISINOPRIL [Concomitant]
     Indication: HYPERTENSION

REACTIONS (5)
  - WEIGHT INCREASED [None]
  - CHONDROPATHY [None]
  - DRUG DOSE OMISSION [None]
  - ARTHROPATHY [None]
  - BASAL CELL CARCINOMA [None]
